FAERS Safety Report 8724179 (Version 3)
Quarter: 2013Q4

REPORT INFORMATION
  Report Type: Report from Study
  Country: NL (occurrence: NL)
  Receive Date: 20120815
  Receipt Date: 20131218
  Transmission Date: 20140711
  Serious: Yes (Other)
  Sender: FDA-Public Use
  Company Number: NL-ASTRAZENECA-2012SE46207

PATIENT
  Age: 26632 Day
  Sex: Female

DRUGS (12)
  1. AZD6140 [Suspect]
     Indication: CORONARY ARTERY DISEASE
     Route: 048
     Dates: start: 20111107, end: 20111201
  2. AZD6140 [Suspect]
     Indication: CORONARY ARTERY DISEASE
     Route: 048
     Dates: start: 20111208, end: 20120702
  3. ASA [Concomitant]
     Route: 048
  4. NITROGLYCERIN [Concomitant]
     Indication: ANGINA PECTORIS
     Route: 060
  5. XALATAN [Concomitant]
     Indication: GLAUCOMA
     Route: 047
  6. TAVONIN [Concomitant]
     Indication: RHEUMATOID ARTHRITIS
     Route: 048
  7. TIMOLOL [Concomitant]
     Indication: GLAUCOMA
     Route: 047
  8. MONOCEDOCARD [Concomitant]
     Indication: ANGINA PECTORIS
     Route: 048
  9. AMLODIPINE [Concomitant]
     Indication: ANGINA PECTORIS
     Route: 048
  10. SIMVASTATIN [Concomitant]
     Indication: HYPERCHOLESTEROLAEMIA
     Route: 048
  11. RANITIDINE [Concomitant]
     Indication: GASTRITIS PROPHYLAXIS
     Route: 048
  12. TRIAMCINOLON [Concomitant]
     Indication: RHEUMATOID ARTHRITIS
     Route: 048

REACTIONS (1)
  - Haematoma infection [Recovered/Resolved]
